FAERS Safety Report 9540862 (Version 1)
Quarter: 2013Q3

REPORT INFORMATION
  Report Type: Spontaneous
  Country: US (occurrence: US)
  Receive Date: 20130920
  Receipt Date: 20130920
  Transmission Date: 20140515
  Serious: Yes (Other)
  Sender: FDA-Public Use
  Company Number: US-JNJFOC-20130907304

PATIENT
  Age: 33 Year
  Sex: Female

DRUGS (2)
  1. NICODERM CQ [Suspect]
     Indication: SMOKING CESSATION THERAPY
     Route: 062
  2. NICORETTE FRUIT CHILL OTC 4MG [Suspect]
     Indication: SMOKING CESSATION THERAPY
     Route: 002
     Dates: start: 20130910, end: 20130910

REACTIONS (3)
  - Convulsion [Not Recovered/Not Resolved]
  - Headache [Not Recovered/Not Resolved]
  - Loss of consciousness [Recovered/Resolved]
